FAERS Safety Report 11613496 (Version 1)
Quarter: 2015Q4

REPORT INFORMATION
  Report Type: Spontaneous
  Country: US (occurrence: US)
  Receive Date: 20151008
  Receipt Date: 20151008
  Transmission Date: 20160304
  Serious: Yes (Hospitalization, Other)
  Sender: FDA-Public Use
  Company Number: US-ASTRAZENECA-2015SE94720

PATIENT
  Age: 77 Year
  Sex: Female
  Weight: 72.6 kg

DRUGS (6)
  1. PRILOSEC [Suspect]
     Active Substance: OMEPRAZOLE MAGNESIUM
     Indication: GASTROOESOPHAGEAL REFLUX DISEASE
     Route: 048
     Dates: start: 1989, end: 2013
  2. PRILOSEC [Suspect]
     Active Substance: OMEPRAZOLE MAGNESIUM
     Indication: HIATUS HERNIA
     Dosage: GENERIC, 20 MG, TWO TIMES A DAY
     Route: 048
     Dates: start: 2013, end: 2013
  3. PRILOSEC [Suspect]
     Active Substance: OMEPRAZOLE MAGNESIUM
     Indication: GASTROOESOPHAGEAL REFLUX DISEASE
     Dosage: GENERIC, 20 MG, TWO TIMES A DAY
     Route: 048
     Dates: start: 2013, end: 2013
  4. PRILOSEC [Suspect]
     Active Substance: OMEPRAZOLE MAGNESIUM
     Indication: HIATUS HERNIA
     Route: 048
     Dates: start: 2013
  5. PRILOSEC [Suspect]
     Active Substance: OMEPRAZOLE MAGNESIUM
     Indication: HIATUS HERNIA
     Route: 048
     Dates: start: 1989, end: 2013
  6. PRILOSEC [Suspect]
     Active Substance: OMEPRAZOLE MAGNESIUM
     Indication: GASTROOESOPHAGEAL REFLUX DISEASE
     Route: 048
     Dates: start: 2013

REACTIONS (9)
  - Neoplasm malignant [Unknown]
  - Gastric pH decreased [Unknown]
  - Product use issue [Unknown]
  - Seizure [Unknown]
  - Drug ineffective [Unknown]
  - Spinal column stenosis [Unknown]
  - Off label use [Unknown]
  - Neuropathy peripheral [Unknown]
  - Dysgeusia [Unknown]

NARRATIVE: CASE EVENT DATE: 2010
